FAERS Safety Report 10758782 (Version 1)
Quarter: 2015Q1

REPORT INFORMATION
  Report Type: Spontaneous
  Country: US (occurrence: US)
  Receive Date: 20150203
  Receipt Date: 20150203
  Transmission Date: 20150721
  Serious: No
  Sender: FDA-Public Use
  Company Number: US-PFIZER INC-2015037647

PATIENT
  Age: 86 Year
  Sex: Female
  Weight: 64 kg

DRUGS (1)
  1. CALAN SR [Suspect]
     Active Substance: VERAPAMIL HYDROCHLORIDE
     Indication: ATRIAL FIBRILLATION
     Dosage: 240 MG, UNK
     Dates: start: 20141001

REACTIONS (10)
  - Peripheral swelling [Unknown]
  - Asthenia [Unknown]
  - Swelling face [Unknown]
  - Activities of daily living impaired [Unknown]
  - Feeling abnormal [Unknown]
  - Constipation [Unknown]
  - Heart rate increased [Unknown]
  - Dyspnoea [Unknown]
  - Malaise [Unknown]
  - Drug hypersensitivity [Unknown]
